FAERS Safety Report 5271808-8 (Version None)
Quarter: 2007Q1

REPORT INFORMATION
  Report Type: 
  Country: None (occurrence: None)
  Receive Date: 20070321
  Receipt Date: 20070309
  Transmission Date: 20070707
  Serious: Yes (Other)
  Sender: FDA-Public Use
  Company Number: US-PFIZER INC-2007018697

PATIENT
  Sex: Male

DRUGS (2)
  1. LOPID [Suspect]
  2. GLUCOTROL XL [Suspect]

REACTIONS (2)
  - ARRHYTHMIA [None]
  - CAROTID ARTERY OCCLUSION [None]
